FAERS Safety Report 5664995-0 (Version None)
Quarter: 2008Q1

REPORT INFORMATION
  Report Type: 
  Country: None (occurrence: None)
  Receive Date: 20080314
  Receipt Date: 20080304
  Transmission Date: 20080703
  Serious: Yes (Other)
  Sender: FDA-Public Use
  Company Number: SE-PFIZER INC-2008020130

PATIENT
  Sex: Male

DRUGS (1)
  1. CABERGOLINE [Suspect]

REACTIONS (1)
  - PULMONARY OEDEMA [None]
